FAERS Safety Report 20611395 (Version 1)
Quarter: 2022Q1

REPORT INFORMATION
  Report Type: Spontaneous
  Country: CN (occurrence: CN)
  Receive Date: 20220318
  Receipt Date: 20220318
  Transmission Date: 20220423
  Serious: Yes (Other)
  Sender: FDA-Public Use
  Company Number: CN-PFIZER INC-202200397429

PATIENT
  Age: 7 Year
  Sex: Male
  Weight: 25 kg

DRUGS (2)
  1. SIROLIMUS [Suspect]
     Active Substance: SIROLIMUS
     Indication: Pancreatic pseudocyst
     Dosage: 075 G, 1X/DAY
     Route: 048
     Dates: start: 20220204, end: 20220305
  2. SIROLIMUS [Suspect]
     Active Substance: SIROLIMUS
     Indication: Vascular malformation

REACTIONS (4)
  - Mouth ulceration [Recovering/Resolving]
  - Off label use [Unknown]
  - Off label use [Unknown]
  - Wrong technique in product usage process [Unknown]

NARRATIVE: CASE EVENT DATE: 20220204
